FAERS Safety Report 10238953 (Version 1)
Quarter: 2014Q2

REPORT INFORMATION
  Report Type: Spontaneous
  Country: US (occurrence: None)
  Receive Date: 20140613
  Receipt Date: 20140613
  Transmission Date: 20141212
  Serious: Yes (Disabling)
  Sender: FDA-Public Use
  Company Number: None

PATIENT
  Age: 43 Year
  Sex: Male
  Weight: 88 kg

DRUGS (11)
  1. EPZICOM [Suspect]
     Indication: HIV INFECTION
     Dosage: 1 PILL
     Route: 048
     Dates: start: 20140529, end: 20140612
  2. EFFEXOR XR [Concomitant]
  3. GEODON [Concomitant]
  4. TRAZODONE [Concomitant]
  5. EPZICOM [Concomitant]
  6. TIVICAY [Concomitant]
  7. FISH OIL [Concomitant]
  8. COQ10 [Concomitant]
  9. CAL/MAG/ZINC [Concomitant]
  10. DHEA [Concomitant]
  11. MULTIVIT [Concomitant]

REACTIONS (2)
  - White blood cell count [None]
  - Hepatitis [None]
